FAERS Safety Report 9282760 (Version 1)
Quarter: 2013Q2

REPORT INFORMATION
  Report Type: Spontaneous
  Country: US (occurrence: None)
  Receive Date: 20130509
  Receipt Date: 20130509
  Transmission Date: 20140414
  Serious: No
  Sender: FDA-Public Use
  Company Number: None

PATIENT
  Age: 51 Year
  Sex: Female
  Weight: 71.22 kg

DRUGS (1)
  1. FLAGYL [Suspect]
     Indication: VAGINITIS BACTERIAL
     Dosage: 250MG TID ORAL
     Route: 048
     Dates: start: 20121126

REACTIONS (2)
  - Back pain [None]
  - Platelet count decreased [None]
